FAERS Safety Report 10613873 (Version 3)
Quarter: 2015Q1

REPORT INFORMATION
  Report Type: Report from Study
  Country: TR (occurrence: TR)
  Receive Date: 20141128
  Receipt Date: 20150225
  Transmission Date: 20150720
  Serious: Yes (Hospitalization)
  Sender: FDA-Public Use
  Company Number: TR-ROCHE-1493910

PATIENT
  Age: 69 Year
  Sex: Male
  Weight: 64.5 kg

DRUGS (25)
  1. BLOOD TRANSFUSION [Concomitant]
     Active Substance: WHOLE BLOOD
     Indication: ANAEMIA
     Route: 042
     Dates: start: 20150126, end: 20150126
  2. SULCID (AMPICILLIN SODIUM/SULBACTAM SODIUM) [Concomitant]
     Indication: URINARY TRACT INFECTION
     Dosage: DOSE UNIT=GRAIN
     Route: 042
     Dates: start: 20150216
  3. METHYLPREDNISOLONE. [Concomitant]
     Active Substance: METHYLPREDNISOLONE
     Indication: CHILLS
     Route: 042
     Dates: start: 20141114, end: 20141114
  4. PARACETAMOL [Concomitant]
     Active Substance: ACETAMINOPHEN
     Indication: CHILLS
     Route: 048
     Dates: start: 20141114, end: 20141114
  5. EMEND [Concomitant]
     Active Substance: APREPITANT
     Indication: VOMITING
     Route: 048
     Dates: start: 20141114, end: 20141114
  6. HYDROCHLOROTHIAZIDE/OLMESARTAN MEDOXOMIL [Concomitant]
     Active Substance: HYDROCHLOROTHIAZIDE\OLMESARTAN MEDOXOMIL
     Indication: HYPERTENSION
     Route: 048
     Dates: start: 20060101
  7. LANSOR [Concomitant]
     Active Substance: LANSOPRAZOLE
     Indication: GASTROOESOPHAGEAL REFLUX DISEASE
     Route: 048
     Dates: start: 20141114
  8. TRASTUZUMAB [Suspect]
     Active Substance: TRASTUZUMAB
     Indication: HER-2 POSITIVE GASTRIC CANCER
     Dosage: MOST RECENT DOSE RECEIVED ON 14/NOV/2014, LOADING DOSE
     Route: 042
     Dates: start: 20141114
  9. CISPLATIN. [Suspect]
     Active Substance: CISPLATIN
     Indication: HER-2 POSITIVE GASTRIC CANCER
     Dosage: MOST RECENT DOSE RECEIVED ON 14/NOV/2014
     Route: 042
     Dates: start: 20141114
  10. PHENIRAMINE [Concomitant]
     Active Substance: PHENIRAMINE
     Indication: CHILLS
     Route: 042
     Dates: start: 20141114, end: 20141114
  11. GAVISCON TABLET (TURKEY) [Concomitant]
     Indication: GASTROOESOPHAGEAL REFLUX DISEASE
     Route: 048
     Dates: start: 20141114
  12. BLINDED PERTUZUMAB [Suspect]
     Active Substance: PERTUZUMAB
     Indication: HER-2 POSITIVE GASTRIC CANCER
     Dosage: MOST RECENT DOSE RECEIVED ON 14/NOV/2014, LOADING DOSE
     Route: 042
     Dates: start: 20141114
  13. DEXAMETHASONE. [Concomitant]
     Active Substance: DEXAMETHASONE
     Indication: CHILLS
     Route: 042
     Dates: start: 20141114, end: 20141114
  14. NORVASC [Concomitant]
     Active Substance: AMLODIPINE BESYLATE
     Indication: HYPERTENSION
     Route: 048
     Dates: start: 20060101
  15. CAPECITABINE. [Suspect]
     Active Substance: CAPECITABINE
     Indication: HER-2 POSITIVE GASTRIC CANCER
     Dosage: MOST RECENT DOSE RECEIVED ON 14/NOV/2014
     Route: 048
     Dates: start: 20141114
  16. ALOXI [Concomitant]
     Active Substance: PALONOSETRON HYDROCHLORIDE
     Indication: VOMITING
     Route: 042
     Dates: start: 20141114, end: 20141114
  17. RANITIDIN [Concomitant]
     Active Substance: RANITIDINE HYDROCHLORIDE
     Indication: GASTROOESOPHAGEAL REFLUX DISEASE
     Route: 042
     Dates: start: 20141114
  18. AVIL [Concomitant]
     Active Substance: PHENIRAMINE
     Indication: HYPERSENSITIVITY
     Route: 042
     Dates: start: 20141114
  19. MAGNESIUM SULFATE. [Concomitant]
     Active Substance: MAGNESIUM SULFATE
     Indication: NEPHROPATHY
     Dosage: INDICATION -NEPHROPATHY DUE TO CISPLATIN
     Route: 042
     Dates: start: 20141114, end: 20141114
  20. METOCLOPRAMIDE HYDROCHLORIDE. [Concomitant]
     Active Substance: METOCLOPRAMIDE HYDROCHLORIDE
     Indication: VOMITING
     Route: 042
     Dates: start: 20141117, end: 20141127
  21. PRIMSEL [Concomitant]
     Indication: VOMITING
     Route: 042
     Dates: start: 20141117, end: 20141127
  22. AMPISID (AMPICILLIN/SULBACTAM) [Concomitant]
     Indication: URINARY TRACT INFECTION
     Route: 042
     Dates: start: 20150216
  23. EMEND [Concomitant]
     Active Substance: APREPITANT
     Indication: VOMITING
     Dosage: SELECT IF ONGOING=NO
     Route: 048
     Dates: start: 20141115, end: 20141116
  24. DEKORT [Concomitant]
     Active Substance: DEXAMETHASONE
     Indication: HYPERSENSITIVITY
     Route: 042
     Dates: start: 20141114
  25. POTASSIUM CHLORIDE. [Concomitant]
     Active Substance: POTASSIUM CHLORIDE
     Indication: NEPHROPATHY
     Dosage: INDICATION - NEPHROPATHY DUE TO CISPLATIN
     Route: 042
     Dates: start: 20141114, end: 20141114

REACTIONS (1)
  - Acute kidney injury [Recovering/Resolving]

NARRATIVE: CASE EVENT DATE: 20141117
